FAERS Safety Report 23919636 (Version 1)
Quarter: 2024Q2

REPORT INFORMATION
  Report Type: Spontaneous
  Country: US (occurrence: None)
  Receive Date: 20240529
  Receipt Date: 20240529
  Transmission Date: 20240716
  Serious: Yes (Hospitalization)
  Sender: FDA-Public Use
  Company Number: None

PATIENT
  Age: 75 Year
  Sex: Male

DRUGS (1)
  1. LISINOPRIL [Suspect]
     Active Substance: LISINOPRIL
     Dates: start: 20240222, end: 20240521

REACTIONS (5)
  - Angioedema [None]
  - Lip swelling [None]
  - Swelling face [None]
  - Swollen tongue [None]
  - Intentional dose omission [None]

NARRATIVE: CASE EVENT DATE: 20240521
